FAERS Safety Report 22335549 (Version 1)
Quarter: 2023Q2

REPORT INFORMATION
  Report Type: Report from Study
  Country: IT (occurrence: IT)
  Receive Date: 20230518
  Receipt Date: 20230518
  Transmission Date: 20230722
  Serious: Yes (Hospitalization)
  Sender: FDA-Public Use
  Company Number: IT-JNJFOC-20200329319

PATIENT
  Age: 16 Year
  Sex: Female

DRUGS (14)
  1. ESKETAMINE [Suspect]
     Active Substance: ESKETAMINE
     Indication: Suicidal ideation
     Dosage: 3 KITS 8 TIMES IN 25 DAYS
     Dates: start: 20191120, end: 20191213
  2. ESKETAMINE [Suspect]
     Active Substance: ESKETAMINE
     Indication: Major depression
  3. PLACEBO [Suspect]
     Active Substance: UNSPECIFIED INGREDIENT
     Indication: Major depression
     Dosage: 8 TIMES IN 25 DAYS
     Route: 048
     Dates: start: 20191120, end: 20191213
  4. PLACEBO [Suspect]
     Active Substance: UNSPECIFIED INGREDIENT
     Indication: Suicidal ideation
  5. LANSOPRAZOLE [Concomitant]
     Active Substance: LANSOPRAZOLE
     Indication: Abdominal pain upper
     Route: 048
     Dates: start: 20200117
  6. DELORAZEPAM [Concomitant]
     Active Substance: DELORAZEPAM
     Indication: Anxiety
     Route: 048
     Dates: start: 20200114
  7. DELORAZEPAM [Concomitant]
     Active Substance: DELORAZEPAM
     Route: 048
     Dates: start: 20200122, end: 20200122
  8. MELATONIN [Concomitant]
     Active Substance: MELATONIN
     Indication: Major depression
     Route: 048
     Dates: start: 20200206, end: 20200314
  9. MELATONIN [Concomitant]
     Active Substance: MELATONIN
     Indication: Suicidal ideation
     Route: 048
     Dates: start: 20200317
  10. QUETIAPINE [Concomitant]
     Active Substance: QUETIAPINE
     Indication: Anxiety
     Route: 048
     Dates: start: 20200130, end: 20200314
  11. QUETIAPINE [Concomitant]
     Active Substance: QUETIAPINE
     Indication: Depression
     Route: 048
     Dates: start: 20200317
  12. FLUVOXAMINE [Concomitant]
     Active Substance: FLUVOXAMINE
     Indication: Major depression
     Route: 048
     Dates: start: 20200206, end: 20200314
  13. FLUVOXAMINE [Concomitant]
     Active Substance: FLUVOXAMINE
     Indication: Suicidal ideation
     Route: 048
     Dates: start: 20200317
  14. ERGOCALCIFEROL [Concomitant]
     Active Substance: ERGOCALCIFEROL
     Indication: Vitamin D deficiency
     Route: 048
     Dates: start: 202002, end: 20200314

REACTIONS (1)
  - Intentional overdose [Recovered/Resolved]

NARRATIVE: CASE EVENT DATE: 20200315
